FAERS Safety Report 4829583-4 (Version None)
Quarter: 2005Q4

REPORT INFORMATION
  Report Type: 
  Country: None (occurrence: None)
  Receive Date: 20051116
  Receipt Date: 20051109
  Transmission Date: 20060501
  Serious: Yes (Other)
  Sender: FDA-Public Use
  Company Number: JP-ROCHE-424206

PATIENT
  Age: 3 Month
  Sex: Female

DRUGS (4)
  1. HORIZON [Suspect]
     Route: 042
  2. DORMICUM [Concomitant]
     Route: 042
     Dates: end: 20051030
  3. ISOSORBIDE [Concomitant]
     Route: 042
     Dates: end: 20051030
  4. PHENOBAL [Concomitant]
     Route: 042
     Dates: end: 20051030

REACTIONS (2)
  - CEREBRAL HAEMORRHAGE [None]
  - PUPILLARY REFLEX IMPAIRED [None]
